FAERS Safety Report 8283475-X (Version None)
Quarter: 2012Q2

REPORT INFORMATION
  Report Type: 
  Country: None (occurrence: None)
  Receive Date: 20120413
  Receipt Date: 20120330
  Transmission Date: 20120825
  Serious: Yes (Other)
  Sender: FDA-Public Use
  Company Number: CHPA2012US005943

PATIENT
  Age: 43 Year
  Sex: Female
  Weight: 69.388 kg

DRUGS (4)
  1. PREVACID 24 HR [Interacting]
     Indication: DYSPEPSIA
     Dosage: 15MG PER DAY
     Route: 048
     Dates: start: 20120101
  2. DIFLUCAN [Interacting]
     Dosage: 1DF
     Route: 065
  3. ESTRACE [Suspect]
     Dosage: UNK, UNK
  4. CLINDAMYCIN [Concomitant]

REACTIONS (12)
  - CYST [None]
  - MOBILITY DECREASED [None]
  - WEIGHT DECREASED [None]
  - INCORRECT DRUG ADMINISTRATION DURATION [None]
  - APHAGIA [None]
  - TREATMENT NONCOMPLIANCE [None]
  - FUNGAL INFECTION [None]
  - MOUTH ULCERATION [None]
  - MALAISE [None]
  - DRUG INTERACTION [None]
  - DRUG INEFFECTIVE FOR UNAPPROVED INDICATION [None]
  - WRONG TECHNIQUE IN DRUG USAGE PROCESS [None]
